FAERS Safety Report 7034376-6 (Version None)
Quarter: 2010Q4

REPORT INFORMATION
  Report Type: 
  Country: None (occurrence: None)
  Receive Date: 20101008
  Receipt Date: 20100930
  Transmission Date: 20110411
  Serious: Yes (Other)
  Sender: FDA-Public Use
  Company Number: US-JNJFOC-20100806054

PATIENT
  Sex: Male

DRUGS (11)
  1. DURAGESIC-100 [Suspect]
     Indication: PAIN
     Route: 062
  2. DURAGESIC-100 [Suspect]
     Route: 062
  3. DURAGESIC-100 [Suspect]
     Route: 062
  4. DURAGESIC-100 [Suspect]
     Route: 062
  5. DURAGESIC-100 [Suspect]
     Route: 062
  6. TOPROL-XL [Concomitant]
     Indication: BLOOD PRESSURE
     Route: 048
  7. CALCITRIOL [Concomitant]
     Indication: NUTRITIONAL SUPPORT
     Route: 048
  8. ZOCOR [Concomitant]
     Indication: PROPHYLAXIS
     Route: 048
  9. LYRICA [Concomitant]
     Indication: HERPES ZOSTER
     Route: 048
  10. NEPRO [Concomitant]
     Indication: NUTRITIONAL SUPPORT
     Route: 065
  11. PROTONIX [Concomitant]
     Indication: DYSPEPSIA
     Route: 048

REACTIONS (8)
  - ABDOMINAL PAIN UPPER [None]
  - ABNORMAL LOSS OF WEIGHT [None]
  - BREAKTHROUGH PAIN [None]
  - EATING DISORDER [None]
  - HERPES ZOSTER [None]
  - PAIN [None]
  - RENAL FAILURE [None]
  - VOMITING [None]
